FAERS Safety Report 6764438 (Version 12)
Quarter: 2016Q1

REPORT INFORMATION
  Report Type: Spontaneous
  Country: US (occurrence: US)
  Receive Date: 20080919
  Receipt Date: 20160311
  Transmission Date: 20160526
  Serious: Yes (Hospitalization, Other)
  Sender: FDA-Public Use
  Company Number: US-ROCHE-552273

PATIENT
  Age: 18 Year
  Sex: Male
  Weight: 56.7 kg

DRUGS (1)
  1. ACCUTANE [Suspect]
     Active Substance: ISOTRETINOIN
     Indication: ACNE
     Dosage: ACCORDING TO MEDICAL RECORD HIS LAST DOSE OF ACCUTANE WAS IN SEPTEMBER 2000.
     Route: 065
     Dates: start: 20000214, end: 20000701

REACTIONS (14)
  - Liver disorder [Unknown]
  - Hernia [Unknown]
  - Inflammatory bowel disease [Unknown]
  - Anal stenosis [Unknown]
  - Colitis [Unknown]
  - Hepatitis [Unknown]
  - Colitis ulcerative [Unknown]
  - Cholangitis sclerosing [Unknown]
  - Crohn^s disease [Unknown]
  - Pouchitis [Unknown]
  - Depression [Not Recovered/Not Resolved]
  - Dysphagia [Unknown]
  - Irritable bowel syndrome [Unknown]
  - Hydrocele [Unknown]

NARRATIVE: CASE EVENT DATE: 20000225
